FAERS Safety Report 5391289-3 (Version None)
Quarter: 2007Q3

REPORT INFORMATION
  Report Type: 
  Country: None (occurrence: None)
  Receive Date: 20070719
  Receipt Date: 20070713
  Transmission Date: 20080115
  Serious: Yes (Hospitalization)
  Sender: FDA-Public Use
  Company Number: AU-GENENTECH-242885

PATIENT
  Age: 48 Year
  Sex: Male

DRUGS (6)
  1. RITUXAN [Suspect]
     Indication: PEMPHIGUS
     Dosage: 375 MG/M2, 1/WEEK
     Route: 042
  2. ACETAMINOPHEN [Concomitant]
     Indication: PREMEDICATION
  3. LORATADINE [Concomitant]
     Indication: PREMEDICATION
  4. PREDNISOLONE [Concomitant]
     Indication: PEMPHIGUS
     Dosage: 0.11 MG/KG, QD
  5. MYCOPHENOLATE MOFETIL [Concomitant]
     Indication: PEMPHIGUS
     Dosage: 3 G, QD
  6. CYCLOSPORINE [Concomitant]
     Indication: PEMPHIGUS

REACTIONS (3)
  - NEUTROPENIA [None]
  - OPPORTUNISTIC INFECTION [None]
  - PNEUMONIA [None]
